FAERS Safety Report 23401903 (Version 1)
Quarter: 2024Q1

REPORT INFORMATION
  Report Type: Spontaneous
  Country: FR (occurrence: FR)
  Receive Date: 20240115
  Receipt Date: 20240115
  Transmission Date: 20240410
  Serious: Yes (Other)
  Sender: FDA-Public Use
  Company Number: None

PATIENT
  Age: 15 Year
  Sex: Female
  Weight: 46.5 kg

DRUGS (10)
  1. METRONIDAZOLE [Suspect]
     Active Substance: METRONIDAZOLE
     Indication: Inflammation
     Dosage: UNK
     Route: 065
     Dates: start: 20230508, end: 20230515
  2. PIPERACILLIN SODIUM\TAZOBACTAM SODIUM [Suspect]
     Active Substance: PIPERACILLIN SODIUM\TAZOBACTAM SODIUM
     Indication: Inflammation
     Dosage: (PIPERACILLINE TAZOBACTAM PANPHARMA 4 G/500 MG, POWDER FOR SOLUTION FOR INFUSION) 3 {DF} (DOSAGE FOR
     Route: 042
     Dates: start: 20230517, end: 20230615
  3. CEFOTAXIME [Suspect]
     Active Substance: CEFOTAXIME SODIUM
     Indication: Inflammation
     Dosage: (CEFOTAXIME VIATRIS) AT AN UNSPECIFIED DOSE AND FREQUENC
     Route: 042
     Dates: start: 20230508, end: 20230515
  4. AMIKACIN [Suspect]
     Active Substance: AMIKACIN
     Indication: Inflammation
     Dosage: (AMIKACIN VIATRIS) AT AN UNSPECIFIED DOSE AND FREQUENCY
     Route: 042
     Dates: start: 20230508, end: 20230530
  5. VANCOMYCIN [Suspect]
     Active Substance: VANCOMYCIN
     Indication: Staphylococcal infection
     Dosage: AT AN UNSPECIFIED DOSE AND FREQUENCY
     Route: 042
     Dates: start: 20230603, end: 20230608
  6. LINEZOLID [Suspect]
     Active Substance: LINEZOLID
     Indication: Staphylococcal infection
     Dosage: AT AN UNSPECIFIED DOSE AND FREQUENCY
     Route: 065
     Dates: start: 20230606, end: 20230617
  7. FLUCONAZOLE [Concomitant]
     Active Substance: FLUCONAZOLE
     Dosage: AT AN UNSPECIFIED DOSE AND FREQUENCY
     Route: 065
  8. DIAZEPAM [Concomitant]
     Active Substance: DIAZEPAM
     Dosage: UNK
     Route: 065
  9. FLUTICASONE FUROATE\VILANTEROL TRIFENATATE [Concomitant]
     Active Substance: FLUTICASONE FUROATE\VILANTEROL TRIFENATATE
     Dosage: (RELVAR ELLIPTA 184 MICROGRAMS/22 MICROGRAMS, INHALATION POWDER, IN A SINGLE-DOSE CONTAINER) AT AN U
     Route: 065
  10. OMEPRAZOLE [Concomitant]
     Active Substance: OMEPRAZOLE
     Dosage: UNK
     Route: 065

REACTIONS (1)
  - Clostridium difficile colitis [Recovered/Resolved]

NARRATIVE: CASE EVENT DATE: 20230612
